FAERS Safety Report 7727370-0 (Version None)
Quarter: 2011Q3

REPORT INFORMATION
  Report Type: 
  Country: None (occurrence: None)
  Receive Date: 20110902
  Receipt Date: 20110830
  Transmission Date: 20111222
  Serious: Yes (Life-Threatening, Hospitalization)
  Sender: FDA-Public Use
  Company Number: GXKR2009GB11731

PATIENT
  Age: 39 Year
  Sex: Male

DRUGS (11)
  1. METFORMIN HCL [Suspect]
     Indication: TYPE 2 DIABETES MELLITUS
     Dosage: 500 MG, TID
     Route: 048
     Dates: start: 20090217
  2. SIMVASTATIN [Suspect]
     Indication: BLOOD CHOLESTEROL INCREASED
     Dosage: 40 MG, UNK
     Route: 048
     Dates: start: 20090217
  3. CLOZAPINE [Suspect]
     Indication: SCHIZOPHRENIA
     Dosage: 600 MG, QD
     Route: 048
     Dates: start: 20031202
  4. CLOMIPRAMINE HCL [Suspect]
     Indication: DEPRESSION
     Route: 048
  5. LISINOPRIL [Suspect]
     Indication: HYPERTENSION
     Dosage: 5 MG, QD
     Route: 048
     Dates: start: 20090217
  6. OMEPRAZOLE [Suspect]
     Route: 048
     Dates: start: 20090217
  7. CLOMIPRAMINE HCL [Suspect]
     Indication: ANXIETY
     Dosage: 200 MG/DAY
     Route: 048
     Dates: start: 20090217
  8. CLOZAPINE [Suspect]
     Dosage: OVERDOSE
     Route: 048
     Dates: start: 20090217
  9. HYOSCINE [Suspect]
     Route: 048
     Dates: start: 20090217
  10. SENNA [Concomitant]
     Indication: CONSTIPATION
     Route: 048
  11. THIAMINE HYDROCHLORIDE [Concomitant]
     Dosage: 100 MG, TID
     Route: 048

REACTIONS (5)
  - WHITE BLOOD CELL COUNT INCREASED [None]
  - AGITATION [None]
  - NEUTROPHIL COUNT INCREASED [None]
  - COMA SCALE ABNORMAL [None]
  - OVERDOSE [None]
